FAERS Safety Report 8807815 (Version 1)
Quarter: 2012Q4

REPORT INFORMATION
  Report Type: 
  Country: JP (occurrence: JP)
  Receive Date: 20120925
  Receipt Date: 20120925
  Transmission Date: 20130627
  Serious: Yes (Other)
  Sender: FDA-Public Use
  Company Number: JP-JNJFOC-20120907625

PATIENT

DRUGS (3)
  1. ITRIZOLE [Suspect]
     Indication: SYSTEMIC CANDIDA
     Dosage: minimum cumulative dose was established as 1000mg
     Route: 042
  2. ITRIZOLE [Suspect]
     Indication: SYSTEMIC CANDIDA
     Route: 042
  3. ITRIZOLE [Suspect]
     Indication: SYSTEMIC CANDIDA
     Route: 048

REACTIONS (1)
  - Blood creatine phosphokinase increased [Unknown]
